FAERS Safety Report 15149045 (Version 1)
Quarter: 2018Q3

REPORT INFORMATION
  Report Type: Spontaneous
  Country: US (occurrence: US)
  Receive Date: 20180716
  Receipt Date: 20180716
  Transmission Date: 20181010
  Serious: No
  Sender: FDA-Public Use
  Company Number: US-PFIZER INC-2018283882

PATIENT
  Age: 54 Year
  Sex: Female
  Weight: 68.4 kg

DRUGS (2)
  1. SOMAVERT [Suspect]
     Active Substance: PEGVISOMANT
     Indication: ERYTHROMELALGIA
     Dosage: 40 MG, A LOADING DOSE OF TWO 20 MG INJECTIONS IN EACH ARM
     Dates: start: 20180705
  2. SOMAVERT [Suspect]
     Active Substance: PEGVISOMANT
     Dosage: 10 MG, DAILY

REACTIONS (5)
  - Abdominal discomfort [Not Recovered/Not Resolved]
  - Diarrhoea [Not Recovered/Not Resolved]
  - Abdominal distension [Not Recovered/Not Resolved]
  - Abdominal pain [Not Recovered/Not Resolved]
  - Product use in unapproved indication [Unknown]

NARRATIVE: CASE EVENT DATE: 20180705
